FAERS Safety Report 8277597-7 (Version None)
Quarter: 2012Q2

REPORT INFORMATION
  Report Type: 
  Country: None (occurrence: None)
  Receive Date: 20120412
  Receipt Date: 20120409
  Transmission Date: 20120825
  Serious: Yes (Disabling, Other)
  Sender: FDA-Public Use
  Company Number: US-PFIZER INC-2010136298

PATIENT
  Sex: Female
  Weight: 70.295 kg

DRUGS (23)
  1. NEURONTIN [Suspect]
     Dosage: UNK
  2. LYRICA [Suspect]
     Dosage: UNK
     Dates: start: 20080101
  3. EFFEXOR [Suspect]
     Indication: POST-TRAUMATIC STRESS DISORDER
     Dosage: 37.5 MG, 1X/DAY
     Route: 048
     Dates: start: 20090101, end: 20110106
  4. SYNTHROID [Concomitant]
     Indication: THYROID DISORDER
     Dosage: 0.5 MG, 1X/DAY
     Route: 048
  5. ASCORBIC ACID [Concomitant]
     Dosage: UNK
  6. EFFEXOR XR [Suspect]
     Indication: POST-TRAUMATIC STRESS DISORDER
     Dosage: 37.5 MG, 1X/DAY
     Route: 048
     Dates: end: 20101201
  7. SINEMET [Concomitant]
     Indication: PERIODIC LIMB MOVEMENT DISORDER
     Dosage: 25/100 MG,DAILY
  8. FENTANYL [Concomitant]
     Indication: SPINAL DISORDER
     Dosage: UNK
  9. CALCIUM [Concomitant]
     Dosage: UNK
  10. MONTELUKAST SODIUM [Concomitant]
     Indication: HYPERSENSITIVITY
     Dosage: 10 MG, 1X/DAY
     Route: 048
  11. EFFEXOR XR [Suspect]
     Indication: DEPRESSION
  12. XANAX [Suspect]
     Indication: ANXIETY
     Dosage: 0.75 MG IN EVENING, UNK
  13. XANAX [Suspect]
     Dosage: 0.25 MG IN THE MORNING AND 0.75 MG IN THE EVENING
  14. LYRICA [Suspect]
     Indication: ROCKY MOUNTAIN SPOTTED FEVER
     Dosage: 150 MG, 1X/DAY
     Route: 048
  15. LYRICA [Suspect]
     Dosage: 200 MG, 1X/DAY
     Route: 048
  16. VITAMIN TAB [Concomitant]
     Dosage: UNK
  17. BENAZEPRIL [Concomitant]
     Indication: HYPERTENSION
     Dosage: 40 MG, 1X/DAY
     Route: 048
  18. ADVAIR DISKUS 100/50 [Concomitant]
     Indication: ASTHMA
     Dosage: UNK
  19. SYNTHROID [Concomitant]
     Dosage: 0.88 UG, DAILY
  20. CLARITIN [Concomitant]
     Dosage: UNK
     Route: 048
  21. LYRICA [Suspect]
     Indication: FIBROMYALGIA
     Dosage: 150 MG, 2X/DAY
     Route: 048
     Dates: start: 20080801
  22. BENAZEPRIL [Concomitant]
     Dosage: 20 MG, DAILY
  23. SINEMET [Concomitant]
     Indication: RESTLESS LEGS SYNDROME
     Dosage: UNK

REACTIONS (23)
  - WEIGHT INCREASED [None]
  - FIBROMYALGIA [None]
  - ACTIVITIES OF DAILY LIVING IMPAIRED [None]
  - BONE PAIN [None]
  - CONSTIPATION [None]
  - ROCKY MOUNTAIN SPOTTED FEVER [None]
  - DIZZINESS [None]
  - HERNIA [None]
  - DRUG INEFFECTIVE [None]
  - SLEEP APNOEA SYNDROME [None]
  - SOMNOLENCE [None]
  - SPONDYLITIS [None]
  - FALL [None]
  - HEADACHE [None]
  - HYPOAESTHESIA [None]
  - INSOMNIA [None]
  - DEPRESSION [None]
  - FEELING ABNORMAL [None]
  - FATIGUE [None]
  - DYSSTASIA [None]
  - CRYING [None]
  - NAUSEA [None]
  - PAIN IN EXTREMITY [None]
